FAERS Safety Report 9906546 (Version 4)
Quarter: 2014Q3

REPORT INFORMATION
  Report Type: Spontaneous
  Country: IE (occurrence: IE)
  Receive Date: 20140218
  Receipt Date: 20140811
  Transmission Date: 20150326
  Serious: Yes (Other)
  Sender: FDA-Public Use
  Company Number: US-ASTRAZENECA-2014SE09242

PATIENT
  Age: 155 Day
  Sex: Female
  Weight: 7.4 kg

DRUGS (14)
  1. ZONISAMIDE. [Concomitant]
     Active Substance: ZONISAMIDE
     Indication: EPILEPSY
     Route: 050
     Dates: start: 201310
  2. CLONAZEPAM. [Concomitant]
     Active Substance: CLONAZEPAM
     Indication: EPILEPSY
     Dosage: 2 MLS MANE 1.75 MLS, NOCTE TARDE
     Route: 048
     Dates: start: 201310
  3. PHENOBARBITONE [Concomitant]
     Active Substance: PHENOBARBITAL
     Indication: EPILEPSY
     Route: 050
     Dates: start: 201310
  4. ZONEGRAN [Concomitant]
     Active Substance: ZONISAMIDE
     Indication: PRODUCT USED FOR UNKNOWN INDICATION
  5. PYRIDOXAL PHOSPHATE [Concomitant]
     Active Substance: PYRIDOXAL PHOSPHATE
     Indication: EPILEPSY
     Route: 048
     Dates: start: 201310
  6. SYNAGIS [Suspect]
     Active Substance: PALIVIZUMAB
     Indication: ENCEPHALOPATHY
     Route: 030
     Dates: start: 201310
  7. TOPAMAX [Concomitant]
     Active Substance: TOPIRAMATE
     Indication: PRODUCT USED FOR UNKNOWN INDICATION
  8. RANITIDINE [Concomitant]
     Active Substance: RANITIDINE\RANITIDINE HYDROCHLORIDE
     Indication: PRODUCT USED FOR UNKNOWN INDICATION
     Route: 050
  9. SYNAGIS [Suspect]
     Active Substance: PALIVIZUMAB
     Indication: ANTIVIRAL PROPHYLAXIS
     Route: 030
     Dates: start: 201310
  10. KEPPRA [Concomitant]
     Active Substance: LEVETIRACETAM
     Indication: PRODUCT USED FOR UNKNOWN INDICATION
  11. FOLIC ACID. [Concomitant]
     Active Substance: FOLIC ACID
     Indication: PRODUCT USED FOR UNKNOWN INDICATION
  12. GALFER [Concomitant]
     Active Substance: IRON
     Indication: PRODUCT USED FOR UNKNOWN INDICATION
     Route: 050
  13. SYNAGIS [Suspect]
     Active Substance: PALIVIZUMAB
     Indication: EPILEPSY
     Route: 030
     Dates: start: 201310
  14. BIOTIN [Concomitant]
     Active Substance: BIOTIN
     Indication: EPILEPSY
     Dosage: EVERY DAY
     Route: 048
     Dates: start: 201310

REACTIONS (2)
  - Diarrhoea [Recovered/Resolved]
  - Off label use [Unknown]

NARRATIVE: CASE EVENT DATE: 20140119
